FAERS Safety Report 8539233-1 (Version None)
Quarter: 2012Q3

REPORT INFORMATION
  Report Type: 
  Country: None (occurrence: None)
  Receive Date: 20120726
  Receipt Date: 20120717
  Transmission Date: 20120928
  Serious: Yes (Other)
  Sender: FDA-Public Use
  Company Number: GB-JNJFOC-20111010645

PATIENT
  Sex: Male
  Weight: 99 kg

DRUGS (7)
  1. SIMVASTATIN [Concomitant]
     Route: 065
  2. FERROUS SULFATE TAB [Concomitant]
     Route: 065
  3. ASPIRIN [Concomitant]
     Route: 065
  4. RAMIPRIL [Concomitant]
     Route: 065
  5. REMICADE [Suspect]
     Indication: PSORIATIC ARTHROPATHY
     Route: 042
     Dates: start: 20101231
  6. METFORMIN HYDROCHLORIDE [Concomitant]
     Route: 065
  7. REMICADE [Suspect]
     Route: 042
     Dates: start: 20111014, end: 20111014

REACTIONS (6)
  - INFUSION RELATED REACTION [None]
  - HYPOTENSION [None]
  - HYPERHIDROSIS [None]
  - FEELING COLD [None]
  - TACHYCARDIA [None]
  - VOMITING [None]
